FAERS Safety Report 19670401 (Version 1)
Quarter: 2021Q3

REPORT INFORMATION
  Report Type: Spontaneous
  Country: US (occurrence: US)
  Receive Date: 20210806
  Receipt Date: 20210806
  Transmission Date: 20211014
  Serious: Yes (Other)
  Sender: FDA-Public Use
  Company Number: US-SAOL THERAPEUTICS-2021SAO00134

PATIENT
  Age: 63 Year
  Sex: Male

DRUGS (5)
  1. FENTANYL. [Suspect]
     Active Substance: FENTANYL
     Dosage: 649 ?G, \DAY
     Route: 037
     Dates: start: 20210401
  2. LIORESAL [Suspect]
     Active Substance: BACLOFEN
     Indication: PAIN
     Dosage: 202.77 ?G, \DAY
     Dates: start: 20210401
  3. FENTANYL. [Suspect]
     Active Substance: FENTANYL
     Indication: PAIN
     Dosage: 720.9 ?G, \DAY
     Route: 037
     Dates: start: 20210401, end: 20210401
  4. CLONIDINE. [Suspect]
     Active Substance: CLONIDINE
     Indication: PAIN
     Dosage: 100.93 ?G, \DAY
     Route: 037
     Dates: start: 20210401
  5. BUPIVACAINE. [Suspect]
     Active Substance: BUPIVACAINE
     Indication: PAIN
     Dosage: 10.093 MG, \DAY
     Route: 037
     Dates: start: 20210401

REACTIONS (3)
  - Incorrect route of product administration [Not Recovered/Not Resolved]
  - Depressed level of consciousness [Recovering/Resolving]
  - Off label use [Not Recovered/Not Resolved]

NARRATIVE: CASE EVENT DATE: 20210401
